FAERS Safety Report 7272523-1 (Version None)
Quarter: 2011Q1

REPORT INFORMATION
  Report Type: 
  Country: None (occurrence: None)
  Receive Date: 20110203
  Receipt Date: 20110131
  Transmission Date: 20110831
  Serious: Yes (Other)
  Sender: FDA-Public Use
  Company Number: TW-JNJFOC-20101103032

PATIENT
  Sex: Male
  Weight: 83 kg

DRUGS (3)
  1. ULTRACET [Suspect]
     Indication: POSTOPERATIVE ANALGESIA
     Route: 048
  2. MORPHINE [Suspect]
     Indication: POSTOPERATIVE ANALGESIA
     Route: 065
  3. DICLOFENAC [Suspect]
     Indication: POSTOPERATIVE ANALGESIA
     Route: 065

REACTIONS (8)
  - ABDOMINAL DISTENSION [None]
  - DIZZINESS [None]
  - GASTROINTESTINAL HAEMORRHAGE [None]
  - PEPTIC ULCER [None]
  - EPISTAXIS [None]
  - FAECES DISCOLOURED [None]
  - CONSTIPATION [None]
  - ABDOMINAL DISCOMFORT [None]
